FAERS Safety Report 9371234 (Version 1)
Quarter: 2013Q4

REPORT INFORMATION
  Report Type: Spontaneous
  Country: US (occurrence: None)
  Receive Date: 20130626
  Receipt Date: 20130626
  Transmission Date: 20140711
  Serious: Yes (Other)
  Sender: FDA-Public Use
  Company Number: None

PATIENT
  Age: 48 Year
  Sex: Female
  Weight: 144.7 kg

DRUGS (1)
  1. FONDAPARINUX SODIUM (ARIXTRA) [Suspect]
     Indication: THROMBOSIS PROPHYLAXIS
     Dates: start: 20130510, end: 20130512

REACTIONS (1)
  - Abdominal wall haematoma [None]
